FAERS Safety Report 16104833 (Version 1)
Quarter: 2019Q1

REPORT INFORMATION
  Report Type: Spontaneous
  Country: US (occurrence: US)
  Receive Date: 20190322
  Receipt Date: 20190322
  Transmission Date: 20190418
  Serious: No
  Sender: FDA-Public Use
  Company Number: US-JNJFOC-20190139437

PATIENT
  Age: 3 Year
  Sex: Female

DRUGS (1)
  1. INFANTS TYLENOL [Suspect]
     Active Substance: ACETAMINOPHEN
     Indication: ACCIDENTAL EXPOSURE TO PRODUCT
     Dosage: HALF OF A BOTTLE ONE TIME
     Route: 048
     Dates: start: 20190128, end: 20190128

REACTIONS (3)
  - Overdose [Unknown]
  - Accidental exposure to product [Unknown]
  - Accidental exposure to product by child [None]

NARRATIVE: CASE EVENT DATE: 20190128
